FAERS Safety Report 10710157 (Version 2)
Quarter: 2015Q1

REPORT INFORMATION
  Report Type: Report from Study
  Country: CA (occurrence: CA)
  Receive Date: 20150114
  Receipt Date: 20150202
  Transmission Date: 20150721
  Serious: Yes (Hospitalization, Other)
  Sender: FDA-Public Use
  Company Number: CA-CELGENE-028-C5013-13051870

PATIENT
  Age: 63 Year
  Sex: Male
  Weight: 70.9 kg

DRUGS (22)
  1. CC-5013 [Suspect]
     Active Substance: LENALIDOMIDE
     Route: 048
     Dates: start: 20140929, end: 20141103
  2. CC-5013 [Suspect]
     Active Substance: LENALIDOMIDE
     Indication: CHRONIC LYMPHOCYTIC LEUKAEMIA
     Dosage: 81 MILLIGRAM
     Route: 048
     Dates: start: 20100201
  3. COLACE [Concomitant]
     Active Substance: DOCUSATE SODIUM
     Indication: PRODUCT USED FOR UNKNOWN INDICATION
     Route: 065
  4. NEUPOGEN [Concomitant]
     Active Substance: FILGRASTIM
     Indication: PRODUCT USED FOR UNKNOWN INDICATION
     Route: 065
  5. CYTARABINE. [Concomitant]
     Active Substance: CYTARABINE
     Indication: ACUTE LYMPHOCYTIC LEUKAEMIA
     Route: 037
     Dates: start: 20141101, end: 20141107
  6. CRYOPRECIPITATE [Concomitant]
     Active Substance: ANTIHEMOPHILIC FACTOR HUMAN\FIBRINOGEN HUMAN\FACTOR XIII CONCENTRATE (HUMAN)\VON WILLEBRAND FACTOR HUMAN
     Indication: ACUTE LYMPHOCYTIC LEUKAEMIA
     Route: 041
     Dates: start: 20141112, end: 20141112
  7. CC-5013 [Suspect]
     Active Substance: LENALIDOMIDE
     Route: 048
     Dates: start: 20130711
  8. LACRILUBE [Concomitant]
     Indication: EYE LUBRICATION THERAPY
     Dosage: 1-2 DROPS
     Route: 047
     Dates: start: 20130219
  9. LANSOPRAZOLE. [Concomitant]
     Active Substance: LANSOPRAZOLE
     Indication: GASTROOESOPHAGEAL REFLUX DISEASE
     Route: 048
     Dates: start: 20111130
  10. NEUPOGEN [Concomitant]
     Active Substance: FILGRASTIM
     Route: 065
  11. G-CSF [Concomitant]
     Active Substance: GRANULOCYTE COLONY-STIMULATING FACTOR NOS
     Route: 058
     Dates: start: 20141027, end: 20141103
  12. TYLENOL WITH CODEINE [Concomitant]
     Active Substance: ACETAMINOPHEN\CODEINE PHOSPHATE
     Indication: PROCEDURAL PAIN
     Route: 048
     Dates: start: 201306
  13. ASPARAGINASE [Concomitant]
     Active Substance: ASPARAGINASE
     Indication: ACUTE LYMPHOCYTIC LEUKAEMIA
     Route: 030
     Dates: start: 20141109, end: 20141109
  14. KCL [Concomitant]
     Active Substance: POTASSIUM CHLORIDE
     Indication: HYPOKALAEMIA
     Dosage: 40 MILLIGRAM
     Route: 048
     Dates: start: 20141112, end: 20141112
  15. ALLOPURINOL. [Concomitant]
     Active Substance: ALLOPURINOL
     Indication: TUMOUR LYSIS SYNDROME
     Dosage: 22800 IU (INTERNATIONAL UNIT)
     Route: 048
  16. CC-5013 [Suspect]
     Active Substance: LENALIDOMIDE
     Dosage: 20 MILLIGRAM
     Route: 048
     Dates: start: 20130515, end: 20130603
  17. G-CSF [Concomitant]
     Active Substance: GRANULOCYTE COLONY-STIMULATING FACTOR NOS
     Indication: PROPHYLAXIS
     Route: 058
     Dates: start: 20130125, end: 20130603
  18. G-CSF [Concomitant]
     Active Substance: GRANULOCYTE COLONY-STIMULATING FACTOR NOS
     Route: 058
     Dates: start: 20141104
  19. RABEPRAZOLE [Concomitant]
     Active Substance: RABEPRAZOLE
     Indication: DYSPEPSIA
     Route: 048
     Dates: start: 20111130
  20. VITAMIN C [Concomitant]
     Active Substance: ASCORBIC ACID
     Indication: GENERAL PHYSICAL CONDITION
     Route: 048
     Dates: start: 201410
  21. KLYTE [Concomitant]
     Indication: HYPOKALAEMIA
     Dosage: 1 TABLET
     Route: 048
     Dates: start: 20141111, end: 20141111
  22. ASA [Concomitant]
     Active Substance: ASPIRIN
     Indication: THROMBOSIS PROPHYLAXIS
     Route: 048
     Dates: start: 20121031

REACTIONS (5)
  - Acute lymphocytic leukaemia [Not Recovered/Not Resolved]
  - Lung adenocarcinoma [Recovered/Resolved]
  - Pneumothorax [Recovered/Resolved with Sequelae]
  - Subcutaneous emphysema [Recovered/Resolved]
  - Pneumothorax [Recovered/Resolved with Sequelae]

NARRATIVE: CASE EVENT DATE: 20130509
